FAERS Safety Report 7396418-8 (Version None)
Quarter: 2011Q1

REPORT INFORMATION
  Report Type: 
  Country: None (occurrence: None)
  Receive Date: 20110328
  Receipt Date: 20110315
  Transmission Date: 20110831
  Serious: Yes (Hospitalization)
  Sender: FDA-Public Use
  Company Number: TPA2011A01197

PATIENT
  Age: 78 Year
  Sex: Male

DRUGS (7)
  1. AMLODIPINE (AMLODIPINE) [Concomitant]
  2. ADENURIC (FEBUXOSTAT) [Suspect]
     Indication: HYPERURICAEMIA
     Dosage: 80 MG (80 MG,1 IN 1 D) PER ORAL
     Route: 048
     Dates: start: 20110303, end: 20110303
  3. COLCHIMAX (COLCHICINE, TIEMONIUM METHYLSULPHATE, PAPAVER SOMNIFERUM P [Concomitant]
  4. NEBIVOLOL HCL [Concomitant]
  5. RAMIPRIL [Concomitant]
  6. KARDEGIC (ACETYLSALICYLATE LYSINE) [Concomitant]
  7. ATORVASTATIN CALCIUM [Concomitant]

REACTIONS (1)
  - ANAPHYLACTIC REACTION [None]
